FAERS Safety Report 14728356 (Version 1)
Quarter: 2018Q2

REPORT INFORMATION
  Report Type: Spontaneous
  Country: JP (occurrence: JP)
  Receive Date: 20180406
  Receipt Date: 20180406
  Transmission Date: 20180711
  Serious: Yes (Other)
  Sender: FDA-Public Use
  Company Number: JP-FRESENIUS KABI-FK201804100

PATIENT
  Age: 67 Year
  Sex: Male

DRUGS (2)
  1. BORTEZOMIB (MANUFACTURER UNKNOWN) [Suspect]
     Active Substance: BORTEZOMIB
     Indication: PLASMA CELL MYELOMA
     Route: 065
  2. DEXAMETHASONE. [Concomitant]
     Active Substance: DEXAMETHASONE
     Indication: PLASMA CELL MYELOMA
     Route: 065

REACTIONS (3)
  - Varicella [Recovered/Resolved]
  - Infection reactivation [Recovered/Resolved]
  - Cytomegalovirus infection [Recovered/Resolved]
